FAERS Safety Report 7318827-5 (Version None)
Quarter: 2011Q1

REPORT INFORMATION
  Report Type: 
  Country: None (occurrence: None)
  Receive Date: 20110228
  Receipt Date: 20100810
  Transmission Date: 20110831
  Serious: No
  Sender: FDA-Public Use
  Company Number: A0874890A

PATIENT
  Sex: Male

DRUGS (5)
  1. OXYGEN [Concomitant]
  2. IMITREX [Suspect]
     Indication: MIGRAINE
     Route: 048
  3. TOPAMAX [Concomitant]
  4. TREXIMET [Suspect]
     Indication: MIGRAINE
     Route: 048
  5. VERAPAMIL [Concomitant]

REACTIONS (1)
  - HEADACHE [None]
